FAERS Safety Report 19086455 (Version 1)
Quarter: 2021Q2

REPORT INFORMATION
  Report Type: Spontaneous
  Country: FR (occurrence: FR)
  Receive Date: 20210402
  Receipt Date: 20210402
  Transmission Date: 20210717
  Serious: Yes (Hospitalization)
  Sender: FDA-Public Use
  Company Number: FR-TEVA-2021-FR-1896065

PATIENT
  Sex: Male

DRUGS (6)
  1. IMOVANE [Suspect]
     Active Substance: ZOPICLONE
     Indication: DRUG ABUSE
     Dosage: 7.5 MILLIGRAM DAILY;
     Route: 048
     Dates: start: 2020
  2. HEROIN [Suspect]
     Active Substance: DIAMORPHINE
     Indication: DRUG DEPENDENCE
     Dosage: UNSPECIFIED
     Route: 042
     Dates: start: 2001
  3. COCAINE [Suspect]
     Active Substance: COCAINE
     Indication: DRUG ABUSE
     Dosage: UNSPECIFIED
     Route: 045
     Dates: start: 1999
  4. BUPRENORPHINE. [Suspect]
     Active Substance: BUPRENORPHINE
     Indication: DRUG ABUSE
     Dosage: UNSPECIFIED
     Route: 065
     Dates: start: 2016, end: 20201006
  5. ALCOOL [Suspect]
     Active Substance: ALCOHOL
     Indication: ALCOHOL USE
     Dosage: UNSPECIFIED
     Route: 048
     Dates: start: 1996
  6. CANNABIS [Suspect]
     Active Substance: CANNABIS SATIVA SUBSP. INDICA TOP
     Indication: DRUG ABUSE
     Dosage: 20 TO 30 JOINTS / DAY
     Route: 055
     Dates: start: 1997

REACTIONS (3)
  - Tension [Not Recovered/Not Resolved]
  - Behavioural addiction [Not Recovered/Not Resolved]
  - Drug abuse [Not Recovered/Not Resolved]

NARRATIVE: CASE EVENT DATE: 2016
